FAERS Safety Report 11565813 (Version 2)
Quarter: 2015Q4

REPORT INFORMATION
  Report Type: Spontaneous
  Country: US (occurrence: US)
  Receive Date: 20150916
  Receipt Date: 20151027
  Transmission Date: 20160304
  Serious: No
  Sender: FDA-Public Use
  Company Number: US-ELI_LILLY_AND_COMPANY-US200905001982

PATIENT
  Age: 69 Year
  Sex: Female
  Weight: 45.35 kg

DRUGS (7)
  1. FORTEO [Suspect]
     Active Substance: TERIPARATIDE
     Dosage: 20 UG, DAILY (1/D)
     Dates: start: 2009
  2. FORTEO [Suspect]
     Active Substance: TERIPARATIDE
     Dosage: 20 UG, DAILY (1/D)
     Dates: start: 2009, end: 2009
  3. FORTEO [Suspect]
     Active Substance: TERIPARATIDE
     Indication: OSTEOPOROSIS
     Dosage: 20 UG, DAILY (1/D)
     Dates: start: 20090427, end: 2009
  4. VITAMIN D [Concomitant]
     Active Substance: CHOLECALCIFEROL
     Dosage: 50000 D/F, 2/W
  5. PROTONIX [Concomitant]
     Active Substance: PANTOPRAZOLE SODIUM
  6. XANAX [Concomitant]
     Active Substance: ALPRAZOLAM
  7. CALCIUM WITH VITAMIN D [Concomitant]
     Active Substance: CALCIUM\VITAMIN D

REACTIONS (17)
  - Myalgia [Not Recovered/Not Resolved]
  - Nasopharyngitis [Not Recovered/Not Resolved]
  - Excessive cerumen production [Recovering/Resolving]
  - Headache [Unknown]
  - Pain in extremity [Recovered/Resolved]
  - Muscle spasms [Not Recovered/Not Resolved]
  - Arthralgia [Unknown]
  - Ear disorder [Recovering/Resolving]
  - Tremor [Unknown]
  - Cough [Not Recovered/Not Resolved]
  - Balance disorder [Not Recovered/Not Resolved]
  - Vertigo [Not Recovered/Not Resolved]
  - Injection site pain [Not Recovered/Not Resolved]
  - Dizziness [Not Recovered/Not Resolved]
  - Ear haemorrhage [Recovering/Resolving]
  - Asthenia [Not Recovered/Not Resolved]
  - Poor quality sleep [Not Recovered/Not Resolved]

NARRATIVE: CASE EVENT DATE: 2009
